FAERS Safety Report 6868089-8 (Version None)
Quarter: 2010Q3

REPORT INFORMATION
  Report Type: 
  Country: None (occurrence: None)
  Receive Date: 20100722
  Receipt Date: 20080515
  Transmission Date: 20110219
  Serious: Yes (Other)
  Sender: FDA-Public Use
  Company Number: US-PFIZER INC-2008043322

PATIENT
  Sex: Male
  Weight: 59 kg

DRUGS (2)
  1. CHANTIX [Suspect]
     Indication: EX-TOBACCO USER
     Dates: start: 20080425
  2. WELLBUTRIN [Concomitant]

REACTIONS (3)
  - DEPRESSION [None]
  - FEELING HOT [None]
  - HYPERHIDROSIS [None]
